FAERS Safety Report 8862158 (Version 2)
Quarter: 2014Q2

REPORT INFORMATION
  Report Type: Spontaneous
  Country: US (occurrence: US)
  Receive Date: 20121026
  Receipt Date: 20131018
  Transmission Date: 20141212
  Serious: Yes (Other)
  Sender: FDA-Public Use
  Company Number: US-PFIZER INC-2012268049

PATIENT
  Sex: Male

DRUGS (8)
  1. GEMFIBROZIL [Suspect]
     Dosage: UNK
  2. ATENOLOL [Suspect]
     Dosage: UNK
  3. MORPHINE SULFATE [Suspect]
     Dosage: UNK
  4. DEXAMETHASONE SODIUM PHOSPHATE [Suspect]
     Dosage: UNK
  5. DURAGESIC [Suspect]
     Dosage: UNK
  6. ASPIRIN [Suspect]
     Dosage: UNK
  7. HYDROCODONE [Suspect]
     Dosage: UNK
  8. CREON [Suspect]
     Indication: DYSPEPSIA
     Dosage: UNK

REACTIONS (1)
  - Malignant melanoma [Unknown]
